FAERS Safety Report 5018916-4 (Version None)
Quarter: 2006Q2

REPORT INFORMATION
  Report Type: 
  Country: None (occurrence: None)
  Receive Date: 20060606
  Receipt Date: 20051222
  Transmission Date: 20061013
  Serious: Yes (Death, Other)
  Sender: FDA-Public Use
  Company Number: DE-BRISTOL-MYERS SQUIBB COMPANY-13232319

PATIENT
  Age: 63 Year
  Sex: Female

DRUGS (13)
  1. HOLOXAN [Suspect]
     Indication: BLADDER CANCER RECURRENT
     Route: 042
     Dates: start: 20050509, end: 20050510
  2. NEURONTIN [Concomitant]
  3. PLANUM [Concomitant]
  4. PASPERTIN [Concomitant]
  5. ETOPOSIDE [Concomitant]
     Dates: start: 20050509, end: 20050510
  6. TRAMADOL HCL [Concomitant]
  7. ACETYLCYSTEINE [Concomitant]
  8. SOLEDUM [Concomitant]
  9. DECORTIN-H [Concomitant]
  10. VIANI [Concomitant]
  11. AMPHO-MORONAL [Concomitant]
  12. PANTOZOL [Concomitant]
  13. KALINOR [Concomitant]

REACTIONS (6)
  - CONFUSIONAL STATE [None]
  - CONVULSION [None]
  - DISORIENTATION [None]
  - ENCEPHALOPATHY [None]
  - MALIGNANT NEOPLASM PROGRESSION [None]
  - MOTOR DYSFUNCTION [None]
